FAERS Safety Report 24086216 (Version 1)
Quarter: 2024Q3

REPORT INFORMATION
  Report Type: Spontaneous
  Country: BR (occurrence: BR)
  Receive Date: 20240712
  Receipt Date: 20240712
  Transmission Date: 20241017
  Serious: Yes (Hospitalization, Other)
  Sender: PHARMACEUTICAL ASSOC
  Company Number: BR-PAIPHARMA-2024-BR-000073

PATIENT
  Age: 55 Year
  Sex: Male

DRUGS (5)
  1. VALPROIC ACID [Suspect]
     Active Substance: VALPROIC ACID
     Indication: Epilepsy
  2. LOSARTAN [Concomitant]
     Active Substance: LOSARTAN
  3. ASPIRIN [Concomitant]
     Active Substance: ASPIRIN
  4. SIMVASTATIN [Concomitant]
     Active Substance: SIMVASTATIN
  5. Aprasolin [Concomitant]

REACTIONS (1)
  - Pleural effusion [Recovered/Resolved]
